FAERS Safety Report 15326451 (Version 1)
Quarter: 2018Q3

REPORT INFORMATION
  Report Type: Spontaneous
  Country: KR (occurrence: KR)
  Receive Date: 20180828
  Receipt Date: 20180828
  Transmission Date: 20181010
  Serious: Yes (Other)
  Sender: FDA-Public Use
  Company Number: KR-TASMAN PHARMA, INC.-2018TSM00037

PATIENT
  Age: 56 Year
  Sex: Female

DRUGS (6)
  1. TRAZODONE [Concomitant]
     Active Substance: TRAZODONE HYDROCHLORIDE
     Indication: SLEEP DISORDER
     Dosage: 50 MG, 1X/DAY
     Route: 065
  2. CLOZAPINE. [Suspect]
     Active Substance: CLOZAPINE
     Indication: SCHIZOPHRENIA
     Dosage: 25 MG, (WITH DAILY INCREASES OF 12.5 MG STARTING ON DAY 3)
     Route: 065
     Dates: start: 201506
  3. CLOZAPINE. [Suspect]
     Active Substance: CLOZAPINE
     Dosage: 250 MG, 1X/DAY
  4. AMISULPRIDE [Concomitant]
     Active Substance: AMISULPRIDE
     Dosage: 200 MG, 1X/DAY
  5. LORAZEPAM. [Concomitant]
     Active Substance: LORAZEPAM
     Indication: SLEEP DISORDER
     Dosage: 1 MG, 1X/DAY
     Route: 065
  6. AMISULPRIDE [Concomitant]
     Active Substance: AMISULPRIDE
     Dosage: GRADUALLY TAPERED
     Route: 065

REACTIONS (1)
  - Supraventricular tachycardia [Recovered/Resolved]
